FAERS Safety Report 8003130-0 (Version None)
Quarter: 2011Q4

REPORT INFORMATION
  Report Type: 
  Country: None (occurrence: None)
  Receive Date: 20111222
  Receipt Date: 20111209
  Transmission Date: 20120403
  Serious: Yes (Hospitalization, Other)
  Sender: FDA-Public Use
  Company Number: PHEH2011US011441

PATIENT
  Sex: Female

DRUGS (7)
  1. DIOVAN HCT [Suspect]
     Dosage: 1 DF (160/25 MG), DAILY
  2. TAROXETINE HCL [Concomitant]
  3. NIFEDIPINE [Suspect]
     Dosage: UNK
  4. METOPROLOL SUCCINATE [Concomitant]
  5. SYNTHROID [Suspect]
     Dosage: 75 UG, DAILY
  6. NITROSTAT [Concomitant]
     Dosage: UNK
  7. ALPRAZOLAM [Concomitant]
     Dosage: 0.5 MG, TID

REACTIONS (8)
  - ALOPECIA [None]
  - APPENDICITIS [None]
  - BLOOD PRESSURE INCREASED [None]
  - CARDIAC DISORDER [None]
  - EYE HAEMORRHAGE [None]
  - MALAISE [None]
  - DIZZINESS [None]
  - RASH [None]
